FAERS Safety Report 14167575 (Version 1)
Quarter: 2017Q4

REPORT INFORMATION
  Report Type: Spontaneous
  Country: CN (occurrence: CN)
  Receive Date: 20171108
  Receipt Date: 20171108
  Transmission Date: 20180321
  Serious: Yes (Life-Threatening)
  Sender: FDA-Public Use
  Company Number: CN-BAXTER-2017BAX037401

PATIENT
  Age: 56 Year
  Sex: Female
  Weight: 50 kg

DRUGS (2)
  1. CEFOPERAZONE SODIUM AND TAZOBACTAM SODIUM [Suspect]
     Active Substance: CEFOPERAZONE\TAZOBACTAM SODIUM
     Indication: EMPYEMA
     Dosage: FREQUENCY: TWICE A DAY
     Route: 041
     Dates: start: 20170804, end: 20170810
  2. METRONIDAZOLE AND SODIUM CHLORIDE INJECTION [Suspect]
     Active Substance: METRONIDAZOLE\SODIUM CHLORIDE
     Indication: EMPYEMA
     Dosage: INJECTION
     Route: 034
     Dates: start: 20170804, end: 20170808

REACTIONS (2)
  - Loss of consciousness [Recovering/Resolving]
  - Seizure [Recovering/Resolving]

NARRATIVE: CASE EVENT DATE: 20170808
